FAERS Safety Report 4934075-8 (Version None)
Quarter: 2006Q1

REPORT INFORMATION
  Report Type: 
  Country: None (occurrence: None)
  Receive Date: 20060303
  Receipt Date: 20060222
  Transmission Date: 20060701
  Serious: Yes (Other)
  Sender: FDA-Public Use
  Company Number: 230979K06USA

PATIENT
  Age: 44 Year
  Sex: Female

DRUGS (3)
  1. REBIF [Suspect]
     Indication: MULTIPLE SCLEROSIS
     Dosage: 44 MCG, 3 IN 1 WEEKS, SUBCUTANEOUS
     Route: 058
     Dates: start: 20040213
  2. NEURONTIN [Concomitant]
  3. LYRICA [Concomitant]

REACTIONS (8)
  - ASTHENIA [None]
  - CHOKING [None]
  - CONVULSION [None]
  - FATIGUE [None]
  - FEELING COLD [None]
  - MEMORY IMPAIRMENT [None]
  - REFUSAL OF TREATMENT BY PATIENT [None]
  - TONGUE BITING [None]
